FAERS Safety Report 9596372 (Version 1)
Quarter: 2013Q4

REPORT INFORMATION
  Report Type: Spontaneous
  Country: TW (occurrence: TW)
  Receive Date: 20131004
  Receipt Date: 20131004
  Transmission Date: 20140711
  Serious: Yes (Other)
  Sender: FDA-Public Use
  Company Number: TW-JNJFOC-20130914873

PATIENT
  Age: 34 Year
  Sex: Female

DRUGS (3)
  1. PALIPERIDONE [Suspect]
     Indication: PSYCHOTIC DISORDER
     Route: 048
  2. PALIPERIDONE [Suspect]
     Indication: PSYCHOTIC DISORDER
     Route: 048
  3. TRIHEXYPHENIDYL [Suspect]
     Indication: EXTRAPYRAMIDAL DISORDER
     Route: 065

REACTIONS (5)
  - Tardive dyskinesia [Recovering/Resolving]
  - Extrapyramidal disorder [Unknown]
  - Depression [Recovering/Resolving]
  - Suicidal ideation [Unknown]
  - Negative thoughts [Unknown]
